FAERS Safety Report 7775799-7 (Version None)
Quarter: 2011Q3

REPORT INFORMATION
  Report Type: 
  Country: None (occurrence: None)
  Receive Date: 20110923
  Receipt Date: 20110920
  Transmission Date: 20111222
  Serious: Yes (Life-Threatening, Hospitalization, Other)
  Sender: FDA-Public Use
  Company Number: JP-B.I. PHARMACEUTICALS,INC./RIDGEFIELD-2011-BP-09149NB

PATIENT
  Sex: Male
  Weight: 61.5 kg

DRUGS (6)
  1. ASPIRIN [Concomitant]
     Indication: CONGESTIVE CARDIOMYOPATHY
     Dosage: 100 MG
     Route: 048
     Dates: start: 20041101, end: 20110618
  2. ALDACTONE [Concomitant]
     Indication: CONGESTIVE CARDIOMYOPATHY
     Dosage: 25 MG
     Route: 048
     Dates: start: 20070219, end: 20110728
  3. LOXOPROFEN [Concomitant]
     Indication: GOUT
     Route: 065
     Dates: start: 20110726, end: 20110728
  4. LASIX [Concomitant]
     Indication: CONGESTIVE CARDIOMYOPATHY
     Dosage: 20 MG
     Route: 048
     Dates: start: 20070219, end: 20110728
  5. CARVEDILOL [Concomitant]
     Indication: CONGESTIVE CARDIOMYOPATHY
     Dosage: 20 MG
     Route: 048
     Dates: start: 20070224, end: 20110728
  6. PRADAXA [Suspect]
     Indication: CONGESTIVE CARDIOMYOPATHY
     Dosage: 300 MG
     Route: 048
     Dates: start: 20110318, end: 20110728

REACTIONS (9)
  - BRONCHITIS [None]
  - DIVERTICULUM [None]
  - COLONIC POLYP [None]
  - COLON CANCER [None]
  - THROMBOCYTOPENIA [None]
  - MELAENA [None]
  - UPPER RESPIRATORY TRACT INFLAMMATION [None]
  - GOUT [None]
  - GINGIVAL BLEEDING [None]
